FAERS Safety Report 8120764-3 (Version None)
Quarter: 2012Q1

REPORT INFORMATION
  Report Type: 
  Country: None (occurrence: None)
  Receive Date: 20120207
  Receipt Date: 20120201
  Transmission Date: 20120608
  Serious: Yes (Life-Threatening, Hospitalization)
  Sender: FDA-Public Use
  Company Number: US-BAYER-2011-111492

PATIENT
  Age: 24 Year
  Sex: Female
  Weight: 74.83 kg

DRUGS (1)
  1. YASMIN [Suspect]
     Indication: CONTRACEPTION
     Dosage: UNK
     Dates: start: 20040101, end: 20040501

REACTIONS (5)
  - VENA CAVA THROMBOSIS [None]
  - DYSPNOEA [None]
  - PULMONARY EMBOLISM [None]
  - PALPITATIONS [None]
  - PLEURITIC PAIN [None]
